FAERS Safety Report 13491997 (Version 1)
Quarter: 2017Q2

REPORT INFORMATION
  Report Type: Spontaneous
  Country: GB (occurrence: GB)
  Receive Date: 20170427
  Receipt Date: 20170427
  Transmission Date: 20170830
  Serious: Yes (Hospitalization, Other)
  Sender: FDA-Public Use
  Company Number: GB-ASTRAZENECA-2017SE42100

PATIENT
  Sex: Male

DRUGS (3)
  1. SEROQUEL [Suspect]
     Active Substance: QUETIAPINE FUMARATE
     Dosage: 600.0MG UNKNOWN
     Route: 048
  2. SEROQUEL [Suspect]
     Active Substance: QUETIAPINE FUMARATE
     Dosage: 700.0MG UNKNOWN
     Route: 048
  3. SEROQUEL [Suspect]
     Active Substance: QUETIAPINE FUMARATE
     Dosage: 600.0MG UNKNOWN
     Route: 048

REACTIONS (14)
  - Tremor [Unknown]
  - Panic attack [Unknown]
  - Soliloquy [Unknown]
  - Dysuria [Unknown]
  - Palpitations [Unknown]
  - Fatigue [Unknown]
  - Psychotic disorder [Unknown]
  - Abdominal pain [Unknown]
  - Restless legs syndrome [Unknown]
  - Seizure like phenomena [Unknown]
  - Mental disorder [Unknown]
  - Constipation [Unknown]
  - Incorrect product formulation administered [Unknown]
  - Paraesthesia [Unknown]
